FAERS Safety Report 4445185-6 (Version None)
Quarter: 2004Q3

REPORT INFORMATION
  Report Type: 
  Country: None (occurrence: None)
  Receive Date: 20040903
  Receipt Date: 20040824
  Transmission Date: 20050211
  Serious: Yes (Hospitalization, Disabling, Other)
  Sender: FDA-Public Use
  Company Number: USA-2004-0016540

PATIENT
  Sex: Male

DRUGS (1)
  1. OXYCONTIN [Suspect]
     Indication: PAIN
     Dates: start: 20011204

REACTIONS (14)
  - ANXIETY [None]
  - BACK PAIN [None]
  - CONDITION AGGRAVATED [None]
  - DRUG DEPENDENCE [None]
  - EMOTIONAL DISORDER [None]
  - EMOTIONAL DISTRESS [None]
  - ILL-DEFINED DISORDER [None]
  - INJURY [None]
  - MENTAL DISORDER [None]
  - NECK PAIN [None]
  - PAIN [None]
  - PAIN EXACERBATED [None]
  - PRE-EXISTING DISEASE [None]
  - SCAR [None]
